FAERS Safety Report 4861103-0 (Version None)
Quarter: 2005Q4

REPORT INFORMATION
  Report Type: 
  Country: None (occurrence: None)
  Receive Date: 20051220
  Receipt Date: 20051214
  Transmission Date: 20060501
  Serious: Yes (Hospitalization)
  Sender: FDA-Public Use
  Company Number: FRPFM-E-20050120-V001

PATIENT
  Age: 63 Year
  Sex: Female

DRUGS (6)
  1. CIBLOR [Suspect]
     Dosage: 4UD PER DAY
     Route: 048
     Dates: start: 20050913, end: 20050920
  2. SOLU-MEDROL [Suspect]
     Dosage: 20MG FOUR TIMES PER DAY
     Route: 048
  3. TIAPROFENIC ACID [Suspect]
     Dosage: 6UD PER DAY
     Route: 048
  4. NIFLURIL [Concomitant]
  5. NUROFEN [Concomitant]
     Dates: start: 20050912, end: 20050913
  6. EFFERALGAN [Concomitant]
     Dosage: 500MG TWICE PER DAY
     Dates: start: 20050913, end: 20050914

REACTIONS (9)
  - CHEILITIS [None]
  - ENANTHEMA [None]
  - OEDEMA [None]
  - PRURITUS [None]
  - RASH ERYTHEMATOUS [None]
  - RASH MACULO-PAPULAR [None]
  - TOXIC SKIN ERUPTION [None]
  - URTICARIA [None]
  - URTICARIA GENERALISED [None]
